FAERS Safety Report 4877146-7 (Version None)
Quarter: 2005Q4

REPORT INFORMATION
  Report Type: 
  Country: None (occurrence: None)
  Receive Date: 20051206
  Receipt Date: 20050816
  Transmission Date: 20060501
  Serious: No
  Sender: FDA-Public Use
  Company Number: USA0508105441

PATIENT
  Age: 76 Year
  Sex: Female

DRUGS (2)
  1. CYMBALTA [Suspect]
     Indication: BACK DISORDER
     Dosage: 30 MG DAY
     Dates: start: 20050811, end: 20050813
  2. NEURONTIN [Concomitant]

REACTIONS (3)
  - MALAISE [None]
  - NAUSEA [None]
  - RETCHING [None]
